FAERS Safety Report 19490974 (Version 2)
Quarter: 2024Q1

REPORT INFORMATION
  Report Type: Spontaneous
  Country: AU (occurrence: AU)
  Receive Date: 20210705
  Receipt Date: 20240202
  Transmission Date: 20240410
  Serious: Yes (Life-Threatening)
  Sender: FDA-Public Use
  Company Number: AU-NEBO-PC007028

PATIENT
  Age: 49 Year
  Sex: Female
  Weight: 59 kg

DRUGS (3)
  1. IRON ISOMALTOSIDE 1000 [Suspect]
     Active Substance: IRON ISOMALTOSIDE 1000
     Indication: Iron deficiency anaemia
     Route: 050
     Dates: start: 20210409, end: 20210409
  2. NIZAC [Concomitant]
     Indication: Premedication
     Route: 050
     Dates: start: 20210409
  3. ZYRTEC [Concomitant]
     Active Substance: CETIRIZINE HYDROCHLORIDE
     Indication: Premedication
     Route: 050
     Dates: start: 20210409

REACTIONS (9)
  - Chest pain [Unknown]
  - Chest discomfort [Unknown]
  - Contusion [Not Recovered/Not Resolved]
  - Liver disorder [Not Recovered/Not Resolved]
  - Urticaria [Unknown]
  - Rash [Unknown]
  - Headache [Unknown]
  - Pruritus [Unknown]
  - Gastrooesophageal reflux disease [Unknown]

NARRATIVE: CASE EVENT DATE: 20210409
